FAERS Safety Report 23700677 (Version 2)
Quarter: 2024Q2

REPORT INFORMATION
  Report Type: Report from Study
  Country: CA (occurrence: None)
  Receive Date: 20240403
  Receipt Date: 20240416
  Transmission Date: 20240716
  Serious: Yes (Other)
  Sender: FDA-Public Use
  Company Number: 2024A075424

PATIENT
  Sex: Female

DRUGS (6)
  1. TEZEPELUMAB-EKKO [Suspect]
     Active Substance: TEZEPELUMAB-EKKO
     Indication: Asthma
     Dosage: 210.0MG UNKNOWN
     Route: 058
     Dates: start: 20231012
  2. AA-SULFATRIM DS [Concomitant]
     Dosage: 800 + 160 MG 1 TABLET EVERY MON-WED-FRIDAY
  3. VENTOLIN [Concomitant]
     Active Substance: ALBUTEROL SULFATE
     Dosage: 100MCG 2 INH 8 X A DAY
  4. SOLU-MEDROL [Concomitant]
     Active Substance: METHYLPREDNISOLONE SODIUM SUCCINATE
     Dosage: ONCE A MONTH
  5. PREDNISONE [Concomitant]
     Active Substance: PREDNISONE
     Dosage: 80MG DIE
     Dates: start: 1991
  6. GLYCOPYRROLATE\INDACATEROL\MOMETASONE FUROATE [Concomitant]
     Active Substance: GLYCOPYRROLATE\INDACATEROL\MOMETASONE FUROATE
     Dosage: 160MCG 1 INH DIE

REACTIONS (3)
  - Neuroendocrine carcinoma [Unknown]
  - Device malfunction [Unknown]
  - Drug dose omission by device [Unknown]
